FAERS Safety Report 9473273 (Version 2)
Quarter: 2013Q3

REPORT INFORMATION
  Report Type: Spontaneous
  Country: US (occurrence: US)
  Receive Date: 20130823
  Receipt Date: 20130823
  Transmission Date: 20140515
  Serious: No
  Sender: FDA-Public Use
  Company Number: US-BRISTOL-MYERS SQUIBB COMPANY-18828285

PATIENT
  Age: 71 Year
  Sex: Female
  Weight: 97.5 kg

DRUGS (14)
  1. SPRYCEL [Suspect]
     Indication: CHRONIC MYELOID LEUKAEMIA
     Route: 048
     Dates: start: 20130403
  2. LASIX [Concomitant]
  3. MORPHINE [Concomitant]
  4. HYDROCODONE [Concomitant]
  5. SUCRALFATE [Concomitant]
  6. EFFEXOR [Concomitant]
     Dosage: TABS
  7. AMBIEN [Concomitant]
     Dosage: TABS.
  8. LYRICA [Concomitant]
     Dosage: CAPS
  9. METFORMIN [Concomitant]
     Dosage: TABS
  10. PROCHLORPERAZINE [Concomitant]
     Dosage: TABS
  11. DIAZEPAM [Concomitant]
     Dosage: TABS
  12. METOPROLOL [Concomitant]
     Dosage: ER TABS.
  13. KLOR-CON [Concomitant]
     Dosage: ER TABS
  14. ESTROVEN [Concomitant]
     Dosage: TABS

REACTIONS (10)
  - Abdominal pain [Not Recovered/Not Resolved]
  - Oedema [Recovered/Resolved]
  - Myalgia [Not Recovered/Not Resolved]
  - Fatigue [Not Recovered/Not Resolved]
  - Asthenia [Not Recovered/Not Resolved]
  - Headache [Not Recovered/Not Resolved]
  - Nausea [Unknown]
  - Rash [Not Recovered/Not Resolved]
  - Vomiting [Unknown]
  - Alopecia [Unknown]
